FAERS Safety Report 19962309 (Version 1)
Quarter: 2021Q4

REPORT INFORMATION
  Report Type: Report from Study
  Country: None (occurrence: PR)
  Receive Date: 20211018
  Receipt Date: 20211018
  Transmission Date: 20220304
  Serious: Yes (Other)
  Sender: FDA-Public Use
  Company Number: PR-ABBVIE-21K-131-4120055-00

PATIENT
  Age: 74 Year
  Sex: Female
  Weight: 46.31 kg

DRUGS (5)
  1. HUMIRA [Suspect]
     Active Substance: ADALIMUMAB
     Indication: Rheumatoid arthritis
     Route: 058
  2. TOZINAMERAN [Suspect]
     Active Substance: TOZINAMERAN
     Indication: COVID-19 immunisation
     Dosage: 1ST DOSE/PFIZER
     Route: 030
     Dates: start: 20210216, end: 20210216
  3. TOZINAMERAN [Suspect]
     Active Substance: TOZINAMERAN
     Dosage: 2ND DOSE/PFIZER
     Route: 030
     Dates: start: 20210309, end: 20210309
  4. TOZINAMERAN [Suspect]
     Active Substance: TOZINAMERAN
     Dosage: 3RD DOSE/PFIZER
     Route: 030
     Dates: start: 20211012, end: 20211012
  5. HUMIRA [Suspect]
     Active Substance: ADALIMUMAB
     Indication: Rheumatoid arthritis
     Route: 058
     Dates: start: 20050614

REACTIONS (5)
  - Pneumothorax [Not Recovered/Not Resolved]
  - Joint swelling [Not Recovered/Not Resolved]
  - Fatigue [Not Recovered/Not Resolved]
  - Vaccination site reaction [Unknown]
  - Arthralgia [Not Recovered/Not Resolved]

NARRATIVE: CASE EVENT DATE: 20210101
